FAERS Safety Report 4387481-7 (Version None)
Quarter: 2004Q2

REPORT INFORMATION
  Report Type: 
  Country: None (occurrence: None)
  Receive Date: 20040630
  Receipt Date: 20040514
  Transmission Date: 20050107
  Serious: No
  Sender: FDA-Public Use
  Company Number: US-BRISTOL-MYERS SQUIBB COMPANY-12588760

PATIENT
  Age: 54 Year
  Sex: Female

DRUGS (2)
  1. REYATAZ [Suspect]
     Indication: HIV TEST POSITIVE
     Dosage: ^ONCE^
     Route: 048
  2. INTERFERON [Suspect]

REACTIONS (1)
  - BLOOD BILIRUBIN INCREASED [None]
